FAERS Safety Report 12109700 (Version 1)
Quarter: 2016Q1

REPORT INFORMATION
  Report Type: Spontaneous
  Country: US (occurrence: None)
  Receive Date: 20160223
  Receipt Date: 20160223
  Transmission Date: 20160526
  Serious: Yes (Life-Threatening)
  Sender: FDA-Public Use
  Company Number: None

PATIENT
  Age: 53 Year
  Sex: Male
  Weight: 127.46 kg

DRUGS (2)
  1. OXALIPLATIN 100 MG/20 ML HOSPIRA [Suspect]
     Active Substance: OXALIPLATIN
     Indication: RECTAL CANCER
     Dosage: 135.15 MG PER CYCLE INTRAVENOUS
     Route: 042
     Dates: start: 20160217, end: 20160217
  2. OXALIPLATIN 50 MG/10 ML HOSPIRA [Suspect]
     Active Substance: OXALIPLATIN
     Indication: RECTAL CANCER
     Dosage: 135.15 MG PER CYCLE INTRAVENOUS
     Route: 042
     Dates: start: 20160217, end: 20160217

REACTIONS (3)
  - No therapeutic response [None]
  - Infusion related reaction [None]
  - Acute respiratory distress syndrome [None]

NARRATIVE: CASE EVENT DATE: 20160217
